FAERS Safety Report 23796693 (Version 6)
Quarter: 2024Q4

REPORT INFORMATION
  Report Type: Report from Study
  Country: US (occurrence: US)
  Receive Date: 20240430
  Receipt Date: 20241226
  Transmission Date: 20250115
  Serious: Yes (Other)
  Sender: TAKEDA
  Company Number: US-TAKEDA-2024TUS040920

PATIENT
  Sex: Female

DRUGS (4)
  1. TEDUGLUTIDE [Suspect]
     Active Substance: TEDUGLUTIDE
     Indication: Product used for unknown indication
     Dosage: UNK
     Dates: start: 20240315, end: 20240609
  2. TEDUGLUTIDE [Suspect]
     Active Substance: TEDUGLUTIDE
     Dosage: UNK
  3. TEDUGLUTIDE [Suspect]
     Active Substance: TEDUGLUTIDE
     Dosage: UNK UNK, QD
  4. TEDUGLUTIDE [Suspect]
     Active Substance: TEDUGLUTIDE
     Dosage: UNK

REACTIONS (8)
  - Muscle spasms [Unknown]
  - Diarrhoea [Unknown]
  - Drug withdrawal syndrome [Unknown]
  - Stoma complication [Unknown]
  - Vomiting [Unknown]
  - Nausea [Unknown]
  - Needle issue [Unknown]
  - Injury associated with device [Unknown]
